FAERS Safety Report 4544645-7 (Version None)
Quarter: 2004Q4

REPORT INFORMATION
  Report Type: 
  Country: None (occurrence: None)
  Receive Date: 20041230
  Receipt Date: 20041220
  Transmission Date: 20050328
  Serious: No
  Sender: FDA-Public Use
  Company Number: 2004UW25814

PATIENT
  Age: 42 Year
  Sex: Male
  Weight: 65 kg

DRUGS (3)
  1. ATENOLOL [Suspect]
     Dosage: 50 MG PO
     Route: 048
     Dates: start: 20040501
  2. SULFADIAZINE [Suspect]
     Dates: end: 20041219
  3. DARAPRIM [Suspect]

REACTIONS (3)
  - PARAESTHESIA [None]
  - RASH [None]
  - THROAT TIGHTNESS [None]
